FAERS Safety Report 8684376 (Version 2)
Quarter: 2014Q2

REPORT INFORMATION
  Report Type: Spontaneous
  Country: US (occurrence: US)
  Receive Date: 20120726
  Receipt Date: 20140402
  Transmission Date: 20141212
  Serious: Yes (Hospitalization)
  Sender: FDA-Public Use
  Company Number: PHHY2012US062636

PATIENT
  Age: 70 Year
  Sex: Male

DRUGS (13)
  1. DONEPEZIL [Suspect]
     Dosage: 5 MG, DAILY
  2. DONEPEZIL [Suspect]
     Dosage: 10 MG, DAILY
  3. QUETIAPINE [Concomitant]
     Dosage: 150 MG AT BED TIME
  4. QUETIAPINE [Concomitant]
     Dosage: 500 UNK, UNK
  5. RISPERIDONE [Concomitant]
     Dosage: 0.25 MG, QD
  6. VALPROIC ACID [Concomitant]
     Dosage: 250 MG, BID
  7. LEVOTHYROXINE [Concomitant]
     Dosage: 50 UG, QD
  8. FERROUS SULFATE [Concomitant]
     Dosage: 325 MG, BID
  9. ASCORBIC ACID [Concomitant]
     Dosage: 250 MG, BID
  10. AMLODIPINE [Concomitant]
     Dosage: 5 MG, QD
  11. SPIRONOLACTONE [Concomitant]
     Dosage: 25 MG, QD
  12. HYDROCHLOROTHIAZIDE [Concomitant]
     Dosage: 25 MG, QD
  13. MEMANTINE [Concomitant]
     Dosage: 5 MG, QD

REACTIONS (8)
  - Mania [Recovered/Resolved]
  - Euphoric mood [Recovered/Resolved]
  - Speech disorder [Recovered/Resolved]
  - Insomnia [Recovered/Resolved]
  - Psychomotor hyperactivity [Recovered/Resolved]
  - Abnormal behaviour [Recovered/Resolved]
  - Flight of ideas [Recovered/Resolved]
  - Sexually inappropriate behaviour [Recovered/Resolved]
